FAERS Safety Report 17144866 (Version 1)
Quarter: 2019Q4

REPORT INFORMATION
  Report Type: Spontaneous
  Country: US (occurrence: US)
  Receive Date: 20191212
  Receipt Date: 20191212
  Transmission Date: 20200122
  Serious: No
  Sender: FDA-Public Use
  Company Number: US-NOVEN PHARMACEUTICALS, INC.-US2019000063

PATIENT

DRUGS (7)
  1. MINIVELLE [Suspect]
     Active Substance: ESTRADIOL
     Indication: HOT FLUSH
     Dosage: 0.1 MG, 2/WK
     Route: 062
  2. MINIVELLE [Suspect]
     Active Substance: ESTRADIOL
     Indication: NIGHT SWEATS
     Dosage: USING THREE 0.1 MG TOGETHER TO MAKE 0.3 MG, 2/WK
     Route: 062
  3. MINIVELLE [Suspect]
     Active Substance: ESTRADIOL
     Dosage: USING THREE 0.1 MG TOGETHER TO MAKE 0.3 MG, 2/WK
     Route: 062
  4. MINIVELLE [Suspect]
     Active Substance: ESTRADIOL
     Dosage: 0.1 MG, 2/WK
     Route: 062
  5. VITAMINS [Concomitant]
     Active Substance: VITAMINS
  6. HUMIRA [Concomitant]
     Active Substance: ADALIMUMAB
     Indication: RHEUMATOID ARTHRITIS
  7. PROGESTERONE. [Concomitant]
     Active Substance: PROGESTERONE
     Route: 048

REACTIONS (7)
  - Blood test abnormal [Recovered/Resolved]
  - Application site erythema [Not Recovered/Not Resolved]
  - Product administered at inappropriate site [Unknown]
  - Application site rash [Unknown]
  - Dermal absorption impaired [Recovered/Resolved]
  - Off label use [Not Recovered/Not Resolved]
  - Application site pruritus [Recovered/Resolved]

NARRATIVE: CASE EVENT DATE: 201908
